FAERS Safety Report 10006279 (Version 1)
Quarter: 2014Q1

REPORT INFORMATION
  Report Type: Spontaneous
  Country: US (occurrence: US)
  Receive Date: 20140313
  Receipt Date: 20140313
  Transmission Date: 20141002
  Serious: No
  Sender: FDA-Public Use
  Company Number: US-ENDO PHARMACEUTICALS INC.-METC20130001

PATIENT
  Age: 35 Year
  Sex: Female
  Weight: 68.55 kg

DRUGS (1)
  1. METHOCARBAMOL TABLETS 750MG [Suspect]
     Indication: PAIN
     Route: 048
     Dates: start: 20130325, end: 20130326

REACTIONS (2)
  - Skin discolouration [Recovering/Resolving]
  - Diarrhoea [Recovered/Resolved]
